FAERS Safety Report 10914208 (Version 1)
Quarter: 2015Q1

REPORT INFORMATION
  Report Type: Spontaneous
  Country: AU (occurrence: AU)
  Receive Date: 20150313
  Receipt Date: 20150313
  Transmission Date: 20150721
  Serious: Yes (Death, Other)
  Sender: FDA-Public Use
  Company Number: AU-TAKEDA-2015MPI001168

PATIENT

DRUGS (9)
  1. SALMETEROL XINAFOATE [Concomitant]
     Active Substance: SALMETEROL XINAFOATE
     Dosage: DOSAGE FORM: UNSPECIFIED
     Route: 065
  2. METOPROLOL [Concomitant]
     Active Substance: METOPROLOL
     Dosage: DOSAGE FORM: UNSPECIFIED
     Route: 065
  3. AMOXICILLIN. [Concomitant]
     Active Substance: AMOXICILLIN
     Dosage: DOSAGE FORM: UNSPECIFIED
     Route: 065
  4. VELCADE [Suspect]
     Active Substance: BORTEZOMIB
     Indication: PRODUCT USED FOR UNKNOWN INDICATION
     Dosage: UNK
     Route: 042
  5. TEMSIROLIMUS [Suspect]
     Active Substance: TEMSIROLIMUS
     Indication: PRODUCT USED FOR UNKNOWN INDICATION
     Dosage: UNK
     Route: 065
  6. GABAPENTIN. [Concomitant]
     Active Substance: GABAPENTIN
     Dosage: DOSAGE FORM: UNSPECIFIED
     Route: 065
  7. FLUTICASONE PROPIONATE. [Concomitant]
     Active Substance: FLUTICASONE PROPIONATE
     Dosage: DOSAGE FORM: UNSPECIFIED
     Route: 065
  8. VALACYCLOVIR [Concomitant]
     Active Substance: VALACYCLOVIR HYDROCHLORIDE
     Dosage: DOSAGE FORM: UNSPECIFIED
     Route: 065
  9. OXYCODONE [Concomitant]
     Active Substance: OXYCODONE
     Dosage: DOSAGE FORM: UNSPECIFIED
     Route: 065

REACTIONS (20)
  - Respiratory failure [Unknown]
  - Chills [Unknown]
  - Anaemia [Unknown]
  - Multi-organ failure [Unknown]
  - Hypoxia [Unknown]
  - Myocardial infarction [Unknown]
  - Tachycardia [Unknown]
  - Granulocytopenia [Unknown]
  - Skin discolouration [Unknown]
  - Hypotension [Unknown]
  - Sudden death [Fatal]
  - Thrombocytopenia [Unknown]
  - Acute respiratory distress syndrome [Unknown]
  - Agranulocytosis [Unknown]
  - Pneumonia [Unknown]
  - Pleural effusion [Unknown]
  - Pulmonary oedema [Unknown]
  - Azotaemia [Unknown]
  - Coma [Unknown]
  - Sepsis [Unknown]
